FAERS Safety Report 7406607-1 (Version None)
Quarter: 2011Q2

REPORT INFORMATION
  Report Type: 
  Country: None (occurrence: None)
  Receive Date: 20110411
  Receipt Date: 20110103
  Transmission Date: 20111010
  Serious: No
  Sender: FDA-Public Use
  Company Number: US-BAYER-2011-027976

PATIENT
  Age: 31 Year
  Sex: Male
  Weight: 104 kg

DRUGS (3)
  1. IBUPROFEN [Concomitant]
  2. ALEVE (CAPLET) [Suspect]
     Indication: ANALGESIC THERAPY
     Route: 048
  3. VALIUM [Concomitant]

REACTIONS (1)
  - RASH PRURITIC [None]
